FAERS Safety Report 7649567-0 (Version None)
Quarter: 2011Q3

REPORT INFORMATION
  Report Type: 
  Country: None (occurrence: None)
  Receive Date: 20110802
  Receipt Date: 20110726
  Transmission Date: 20111222
  Serious: Yes (Other)
  Sender: FDA-Public Use
  Company Number: US-PFIZER INC-2011114248

PATIENT
  Sex: Female

DRUGS (2)
  1. PREMPRO [Suspect]
     Indication: HOT FLUSH
     Dosage: 0.3 / 1.5 MG
     Dates: start: 20110701
  2. PREMPRO [Suspect]
     Indication: MENOPAUSAL SYMPTOMS
     Dosage: 0.625 / 2.5 MG DAILY
     Route: 048
     Dates: start: 20080101, end: 20110701

REACTIONS (4)
  - ABDOMINAL DISTENSION [None]
  - WEIGHT INCREASED [None]
  - ASTHMA [None]
  - PULMONARY OEDEMA [None]
